FAERS Safety Report 23938930 (Version 2)
Quarter: 2024Q2

REPORT INFORMATION
  Report Type: Spontaneous
  Country: HK (occurrence: HK)
  Receive Date: 20240604
  Receipt Date: 20240613
  Transmission Date: 20240715
  Serious: Yes (Other)
  Sender: FDA-Public Use
  Company Number: HK-002147023-NVSC2024HK111710

PATIENT

DRUGS (1)
  1. RUXOLITINIB [Suspect]
     Active Substance: RUXOLITINIB
     Indication: Myelofibrosis
     Dosage: 20 MG, BID
     Route: 065
     Dates: start: 2023

REACTIONS (1)
  - Diffuse large B-cell lymphoma [Unknown]
